FAERS Safety Report 17058471 (Version 2)
Quarter: 2019Q4

REPORT INFORMATION
  Report Type: Spontaneous
  Country: BE (occurrence: BE)
  Receive Date: 20191121
  Receipt Date: 20191122
  Transmission Date: 20200122
  Serious: Yes (Other)
  Sender: FDA-Public Use
  Company Number: BE-JNJFOC-20191115989

PATIENT

DRUGS (2)
  1. INVEGA [Suspect]
     Active Substance: PALIPERIDONE
     Indication: SCHIZOPHRENIA
     Route: 048
  2. LORAZEPAM. [Concomitant]
     Active Substance: LORAZEPAM
     Indication: SCHIZOPHRENIA
     Route: 065

REACTIONS (6)
  - Amnesia [Recovered/Resolved]
  - Abnormal behaviour [Recovered/Resolved]
  - Insomnia [Recovered/Resolved]
  - Hallucination [Recovered/Resolved]
  - Alcohol interaction [Recovered/Resolved]
  - Anxiety [Recovered/Resolved]
